FAERS Safety Report 5531602-7 (Version None)
Quarter: 2007Q4

REPORT INFORMATION
  Report Type: 
  Country: None (occurrence: None)
  Receive Date: 20071128
  Receipt Date: 20071112
  Transmission Date: 20080405
  Serious: Yes (Disabling)
  Sender: FDA-Public Use
  Company Number: S07-DEN-05256-01

PATIENT
  Age: 53 Year
  Sex: Male

DRUGS (2)
  1. AKARIN (CITALOPRAM) [Suspect]
     Indication: DEPRESSION
     Dosage: 60 MG QD PO
     Route: 048
     Dates: start: 20040101, end: 20060602
  2. CYMBALTA [Concomitant]

REACTIONS (2)
  - CEREBRAL ATROPHY [None]
  - TREMOR [None]
